FAERS Safety Report 4887639-4 (Version None)
Quarter: 2006Q1

REPORT INFORMATION
  Report Type: 
  Country: None (occurrence: None)
  Receive Date: 20060123
  Receipt Date: 20060109
  Transmission Date: 20060701
  Serious: Yes (Hospitalization, Disabling)
  Sender: FDA-Public Use
  Company Number: IT-AVENTIS-200610286EU

PATIENT
  Age: 65 Year
  Sex: Female
  Weight: 70 kg

DRUGS (9)
  1. ENOXAPARIN [Suspect]
     Indication: ANGINA UNSTABLE
     Route: 058
     Dates: end: 20050209
  2. ASPIRIN [Concomitant]
  3. CLOPIDOGREL [Concomitant]
  4. LOW MOLECULAR WEIGHT HEPARIN [Concomitant]
  5. CORTICOSTEROIDS [Concomitant]
  6. NSAID'S [Concomitant]
  7. CORONARY VASODILATORS [Concomitant]
  8. ACE INHIBITOR NOS [Concomitant]
  9. SERUMLIPIDREDUCING AGENTS [Concomitant]

REACTIONS (1)
  - MUSCULOSKELETAL PAIN [None]
